FAERS Safety Report 4902850-1 (Version None)
Quarter: 2006Q1

REPORT INFORMATION
  Report Type: 
  Country: None (occurrence: None)
  Receive Date: 20060207
  Receipt Date: 20010613
  Transmission Date: 20060701
  Serious: Yes (Other)
  Sender: FDA-Public Use
  Company Number: US-2001-BP-02062

PATIENT
  Age: 5 Month
  Sex: Female

DRUGS (17)
  1. NEVIRAPINE [Suspect]
     Indication: ACQUIRED IMMUNODEFICIENCY SYNDROME
     Route: 048
     Dates: start: 20001231, end: 20010521
  2. OXYGEN [Concomitant]
     Indication: PNEUMONIA
     Dates: start: 20010502, end: 20010504
  3. GENTAMICIN [Concomitant]
     Indication: PNEUMONIA
     Route: 042
     Dates: start: 20010503, end: 20010508
  4. COTRIMOXAZOLE/TRIMETHOPRIM [Concomitant]
     Indication: PNEUMOCYSTIS JIROVECI PNEUMONIA
     Route: 042
     Dates: start: 20010501
  5. 4.2% NAHCO3 [Concomitant]
     Indication: ACIDOSIS
     Route: 042
     Dates: start: 20010515
  6. 1/2 DARROWS DEXTROSE [Concomitant]
     Indication: DEHYDRATION
     Route: 042
     Dates: start: 20010515, end: 20010516
  7. MICONAZOLE [Concomitant]
     Indication: ORAL CANDIDIASIS
     Route: 042
     Dates: start: 20010521
  8. ERYTHROMYCIN [Concomitant]
     Indication: COUGH
     Route: 048
     Dates: start: 20010521
  9. ZINC OXIDE PASTE [Concomitant]
     Indication: DERMATITIS
     Route: 061
     Dates: start: 20010521
  10. VITAMIN K [Concomitant]
     Indication: PROPHYLAXIS
     Route: 030
     Dates: start: 20001229, end: 20001229
  11. BENZYL PENICILLIN [Concomitant]
     Indication: NEONATAL ASPIRATION
     Route: 042
     Dates: start: 20001229, end: 20010103
  12. GENTAMICIN [Concomitant]
     Indication: NEONATAL ASPIRATION
     Route: 042
     Dates: start: 20001229, end: 20010103
  13. COTRIMOXAZOLE/TRIMETHOPRIM [Concomitant]
     Route: 048
     Dates: start: 20010402, end: 20010501
  14. LORABID [Concomitant]
     Indication: UPPER RESPIRATORY TRACT INFECTION
     Route: 048
     Dates: start: 20010402, end: 20010406
  15. ERYTHROMYCIN [Concomitant]
     Indication: PNEUMONIA
     Route: 048
     Dates: start: 20010420, end: 20010430
  16. PARACETAMOL [Concomitant]
     Indication: PYREXIA
     Route: 048
     Dates: start: 20010430, end: 20010503
  17. BENZYL PENICILLIN [Concomitant]
     Indication: PNEUMONIA
     Route: 030
     Dates: start: 20010430, end: 20010508

REACTIONS (12)
  - ASPARTATE AMINOTRANSFERASE INCREASED [None]
  - CANDIDIASIS [None]
  - DERMATITIS [None]
  - DERMATITIS ALLERGIC [None]
  - DERMATITIS DIAPER [None]
  - DRUG EXPOSURE DURING PREGNANCY [None]
  - GASTRITIS [None]
  - GASTROENTERITIS [None]
  - NEONATAL ASPIRATION [None]
  - ORAL CANDIDIASIS [None]
  - PNEUMONIA [None]
  - THROMBOCYTOPENIA [None]
